FAERS Safety Report 5499260-8 (Version None)
Quarter: 2007Q4

REPORT INFORMATION
  Report Type: 
  Country: None (occurrence: None)
  Receive Date: 20071026
  Receipt Date: 20071025
  Transmission Date: 20080405
  Serious: Yes (Hospitalization, Other)
  Sender: FDA-Public Use
  Company Number: US-JNJFOC-20070704367

PATIENT
  Age: 42 Year
  Sex: Female
  Weight: 52.16 kg

DRUGS (7)
  1. TOPAMAX [Suspect]
     Route: 048
  2. TOPAMAX [Suspect]
     Route: 048
  3. TOPAMAX [Suspect]
     Route: 048
  4. TOPAMAX [Suspect]
     Indication: MIGRAINE PROPHYLAXIS
     Route: 048
  5. TOPAMAX [Suspect]
     Route: 048
  6. ALLEGRA [Concomitant]
     Indication: HYPERSENSITIVITY
     Route: 048
  7. AXERT [Concomitant]
     Indication: MIGRAINE
     Route: 048

REACTIONS (10)
  - ASTHENIA [None]
  - BLINDNESS TRANSIENT [None]
  - BLOOD VISCOSITY INCREASED [None]
  - EYE PAIN [None]
  - HYPOAESTHESIA [None]
  - NAUSEA [None]
  - PARAESTHESIA [None]
  - PHOTOPSIA [None]
  - TREMOR [None]
  - VISION BLURRED [None]
